FAERS Safety Report 10061711 (Version 1)
Quarter: 2014Q2

REPORT INFORMATION
  Report Type: Spontaneous
  Country: US (occurrence: US)
  Receive Date: 20140407
  Receipt Date: 20140407
  Transmission Date: 20141212
  Serious: No
  Sender: FDA-Public Use
  Company Number: US-TARO-2014P1001497

PATIENT
  Sex: Male

DRUGS (1)
  1. FLUOROURACIL TOPICAL CREAM USP 5% [Suspect]
     Indication: ACTINIC KERATOSIS
     Dates: start: 20140210

REACTIONS (3)
  - Drug effect delayed [Recovering/Resolving]
  - Erythema [Not Recovered/Not Resolved]
  - Scab [Not Recovered/Not Resolved]
